FAERS Safety Report 19040212 (Version 1)
Quarter: 2021Q1

REPORT INFORMATION
  Report Type: Spontaneous
  Country: US (occurrence: US)
  Receive Date: 20210322
  Receipt Date: 20210322
  Transmission Date: 20210420
  Serious: No
  Sender: FDA-Public Use
  Company Number: US-BIOHAVEN PHARMACEUTICALS-2021BHV00030

PATIENT
  Age: 58 Year
  Sex: Female
  Weight: 44.22 kg

DRUGS (10)
  1. NURTEC ODT [Suspect]
     Active Substance: RIMEGEPANT SULFATE
     Indication: MIGRAINE
     Dosage: 75 MG, ONCE
     Route: 060
     Dates: start: 20201213, end: 20201213
  2. TYLENOL [Concomitant]
     Active Substance: ACETAMINOPHEN
  3. VITAMIN D3 [Concomitant]
     Active Substance: CHOLECALCIFEROL
  4. CITRACAL [Concomitant]
     Active Substance: CALCIUM CITRATE
     Dosage: OCCASIONALLY
  5. NATURE^S WAY SAMBUCUS ELDERBERRY IMMUNE SUPPORT [Suspect]
     Active Substance: DIETARY SUPPLEMENT\HERBALS
  6. NAPROSYN [Concomitant]
     Active Substance: NAPROXEN
     Dosage: OCCASIONALLY
  7. ALEVE [Concomitant]
     Active Substance: NAPROXEN SODIUM
     Dosage: OCCASIONALLY
  8. MAGNESIUM L?THREONATE [Concomitant]
     Dosage: 1 CAPSULES
  9. MAGNESIUM GLUCONATE [Concomitant]
     Active Substance: MAGNESIUM GLUCONATE
     Dosage: 1 CAPSULES
  10. ZINC. [Concomitant]
     Active Substance: ZINC
     Dosage: OCCASIONALLY

REACTIONS (14)
  - Dyspnoea [Recovering/Resolving]
  - Malaise [Unknown]
  - Weight decreased [Unknown]
  - Fatigue [Recovered/Resolved]
  - Therapeutic product effect incomplete [Recovered/Resolved]
  - Unevaluable event [Unknown]
  - Poisoning [Unknown]
  - Bradykinesia [Unknown]
  - Pruritus [Unknown]
  - Paraesthesia [Unknown]
  - Product use issue [Recovered/Resolved]
  - Feeling abnormal [Unknown]
  - Hangover [Unknown]
  - Burning sensation [Unknown]

NARRATIVE: CASE EVENT DATE: 202012
